FAERS Safety Report 7402946-9 (Version None)
Quarter: 2011Q2

REPORT INFORMATION
  Report Type: 
  Country: None (occurrence: None)
  Receive Date: 20110408
  Receipt Date: 20110328
  Transmission Date: 20111010
  Serious: No
  Sender: FDA-Public Use
  Company Number: US-JNJFOC-20110312479

PATIENT
  Sex: Male

DRUGS (2)
  1. DURAGESIC [Suspect]
     Indication: MENINGITIS
     Dosage: 100 UG/HR + 50 UG/HR
     Route: 062
  2. UNSPECIFICED FENTANYL PATCH [Suspect]
     Indication: MENINGITIS
     Dosage: 100 UG/HR + 50 UG/HR

REACTIONS (5)
  - HYPERHIDROSIS [None]
  - DRUG INEFFECTIVE [None]
  - DIARRHOEA [None]
  - MALAISE [None]
  - INAPPROPRIATE SCHEDULE OF DRUG ADMINISTRATION [None]
